FAERS Safety Report 23305295 (Version 3)
Quarter: 2024Q1

REPORT INFORMATION
  Report Type: Spontaneous
  Country: DK (occurrence: DK)
  Receive Date: 20231218
  Receipt Date: 20240122
  Transmission Date: 20240410
  Serious: Yes (Other)
  Sender: FDA-Public Use
  Company Number: DK-MLMSERVICE-20230316-4167783-1

PATIENT
  Age: 6 Decade
  Sex: Female

DRUGS (3)
  1. PEMETREXED [Suspect]
     Active Substance: PEMETREXED
     Indication: Lung adenocarcinoma stage IV
     Dosage: UNK (FOR 1 CYCLE)
     Route: 065
  2. CARBOPLATIN [Suspect]
     Active Substance: CARBOPLATIN
     Indication: Lung adenocarcinoma stage IV
     Dosage: UNK (FOR 1 CYCLE)
     Route: 065
  3. PEMBROLIZUMAB [Suspect]
     Active Substance: PEMBROLIZUMAB
     Indication: Lung adenocarcinoma stage IV
     Dosage: UNK
     Route: 065

REACTIONS (4)
  - Febrile neutropenia [Recovering/Resolving]
  - Hepatic function abnormal [Recovering/Resolving]
  - Peripheral sensory neuropathy [Recovered/Resolved]
  - Therapeutic product effect incomplete [Unknown]
